FAERS Safety Report 20553298 (Version 1)
Quarter: 2022Q1

REPORT INFORMATION
  Report Type: Report from Study
  Country: CA (occurrence: CA)
  Receive Date: 20220304
  Receipt Date: 20220304
  Transmission Date: 20220423
  Serious: Yes (Hospitalization, Other)
  Sender: FDA-Public Use
  Company Number: CA-GLAXOSMITHKLINE-CA2022AMR038883

PATIENT
  Age: 47 Year
  Sex: Female

DRUGS (2)
  1. FLUTICASONE FUROATE\VILANTEROL TRIFENATATE [Suspect]
     Active Substance: FLUTICASONE FUROATE\VILANTEROL TRIFENATATE
     Indication: Asthma
     Dosage: UNK
  2. VENTOLIN [Suspect]
     Active Substance: ALBUTEROL SULFATE
     Indication: Asthma
     Dosage: UNK

REACTIONS (8)
  - Coeliac disease [Unknown]
  - Mobility decreased [Unknown]
  - Illness [Unknown]
  - Weight decreased [Unknown]
  - Asthma [Unknown]
  - Cough [Unknown]
  - Wheezing [Unknown]
  - Drug ineffective [Unknown]
